FAERS Safety Report 8611630-5 (Version None)
Quarter: 2012Q3

REPORT INFORMATION
  Report Type: 
  Country: None (occurrence: None)
  Receive Date: 20120809
  Receipt Date: 20120725
  Transmission Date: 20120928
  Serious: Yes (Death, Hospitalization, Other)
  Sender: FDA-Public Use
  Company Number: 2012MA009097

PATIENT
  Age: 16 Year
  Sex: Female

DRUGS (3)
  1. LISDEXAMFETAMINE DIMESYLATE [Suspect]
     Dosage: PO
     Route: 048
  2. KADIAN [Suspect]
     Dosage: PO
     Route: 048
  3. SERTRALINE HYDROCHLORIDE [Suspect]
     Dosage: PO
     Route: 048

REACTIONS (10)
  - VENTRICULAR TACHYCARDIA [None]
  - COMPLETED SUICIDE [None]
  - EPISTAXIS [None]
  - BLOOD PRESSURE DECREASED [None]
  - PUPIL FIXED [None]
  - BRAIN DEATH [None]
  - UNRESPONSIVE TO STIMULI [None]
  - CARDIAC ARREST [None]
  - DRUG SCREEN POSITIVE [None]
  - VOMITING [None]
